FAERS Safety Report 5902437-8 (Version None)
Quarter: 2008Q3

REPORT INFORMATION
  Report Type: 
  Country: None (occurrence: None)
  Receive Date: 20080929
  Receipt Date: 20080916
  Transmission Date: 20090109
  Serious: Yes (Hospitalization)
  Sender: FDA-Public Use
  Company Number: US-ELI_LILLY_AND_COMPANY-US200711000936

PATIENT
  Sex: Female

DRUGS (2)
  1. ZYPREXA [Suspect]
     Indication: MENTAL DISORDER
     Dosage: 5 MG, UNK
     Dates: start: 20000101
  2. ZYPREXA [Suspect]
     Dosage: 2.5 MG, UNK
     Dates: start: 19990101

REACTIONS (8)
  - CONFUSIONAL STATE [None]
  - DRUG EXPOSURE DURING PREGNANCY [None]
  - GAIT DISTURBANCE [None]
  - HEART RATE IRREGULAR [None]
  - HYPOAESTHESIA [None]
  - MEMORY IMPAIRMENT [None]
  - PALPITATIONS [None]
  - SYNCOPE [None]
